FAERS Safety Report 23210932 (Version 2)
Quarter: 2023Q4

REPORT INFORMATION
  Report Type: Spontaneous
  Country: US (occurrence: US)
  Receive Date: 20231121
  Receipt Date: 20231212
  Transmission Date: 20240109
  Serious: Yes (Other)
  Sender: FDA-Public Use
  Company Number: US-SPECGX-T202302213

PATIENT
  Age: 75 Year
  Sex: Female
  Weight: 65 kg

DRUGS (4)
  1. ACETAMINOPHEN\HYDROCODONE [Suspect]
     Active Substance: ACETAMINOPHEN\HYDROCODONE
     Indication: Analgesic therapy
     Dosage: ONE TABLET 5 TIMES A DAY
     Route: 048
  2. ACETAMINOPHEN\HYDROCODONE [Suspect]
     Active Substance: ACETAMINOPHEN\HYDROCODONE
     Dosage: TRIED TO TAKE HALF
     Route: 048
  3. FULVESTRANT [Suspect]
     Active Substance: FULVESTRANT
     Indication: Breast cancer
     Dosage: UNK
     Route: 065
  4. ADVIL [Concomitant]
     Active Substance: IBUPROFEN
     Indication: Analgesic therapy
     Dosage: UNK
     Route: 065

REACTIONS (16)
  - Upper limb fracture [Unknown]
  - Shoulder fracture [Unknown]
  - Urinary tract infection [Not Recovered/Not Resolved]
  - COVID-19 [Unknown]
  - Immunodeficiency [Unknown]
  - Mental impairment [Unknown]
  - Blister [Not Recovered/Not Resolved]
  - Illness [Unknown]
  - Eye allergy [Recovered/Resolved]
  - Sleep disorder [Unknown]
  - Weight decreased [Unknown]
  - Nightmare [Unknown]
  - Urticaria [Recovered/Resolved]
  - Wrong technique in product usage process [Unknown]
  - Therapeutic response shortened [Unknown]
  - Drug ineffective [Unknown]

NARRATIVE: CASE EVENT DATE: 20190101
